FAERS Safety Report 10772414 (Version 1)
Quarter: 2015Q1

REPORT INFORMATION
  Report Type: Spontaneous
  Country: US (occurrence: US)
  Receive Date: 20150207
  Receipt Date: 20150207
  Transmission Date: 20150721
  Serious: Yes (Other)
  Sender: FDA-Public Use
  Company Number: US-ACCORD-028448

PATIENT
  Sex: Male

DRUGS (3)
  1. OCTREOTIDE [Concomitant]
     Active Substance: OCTREOTIDE
     Indication: PANCREATIC CARCINOMA
     Dosage: RECEIVED FROM THE PAST 4 MONTHS.
     Route: 030
  2. ETOPOSIDE. [Suspect]
     Active Substance: ETOPOSIDE
     Indication: PANCREATIC CARCINOMA
     Dosage: DAILY FOR FIRST 3 WEEKS OF EACH 4-WEEK CYCLE.?RECEIVED FROM THE PAST 4 MONTHS.
     Route: 048
  3. PANCRELIPASE. [Concomitant]
     Active Substance: PANCRELIPASE
     Indication: PANCREATIC CARCINOMA
     Dosage: RECEIVED FROM THE PAST 4 MONTHS.

REACTIONS (2)
  - Erythema ab igne [Recovered/Resolved]
  - Off label use [Unknown]
